FAERS Safety Report 5676529-5 (Version None)
Quarter: 2008Q1

REPORT INFORMATION
  Report Type: 
  Country: None (occurrence: None)
  Receive Date: 20080324
  Receipt Date: 20080312
  Transmission Date: 20080703
  Serious: Yes (Other)
  Sender: FDA-Public Use
  Company Number: DE-RANBAXY-2008RR-13785

PATIENT

DRUGS (3)
  1. VALPROATE SODIUM [Suspect]
     Dosage: 50 MG/KG, QD
  2. TOPIRAMATE [Suspect]
     Dosage: 7 MG/KG, QD
  3. L-CARNITINE [Concomitant]
     Dosage: 100 MG/KG, QD

REACTIONS (1)
  - HEPATOTOXICITY [None]
